FAERS Safety Report 5720948 (Version 7)
Quarter: 2018Q3

REPORT INFORMATION
  Report Type: Spontaneous
  Country: GB (occurrence: GB)
  Receive Date: 20050124
  Receipt Date: 20180912
  Transmission Date: 20181010
  Serious: Yes (Death, Congenital Anomaly)
  Sender: FDA-Public Use
  Company Number: GB-ROCHE-393000

PATIENT
  Sex: Female
  Weight: 2.9 kg

DRUGS (8)
  1. LASIX [Concomitant]
     Active Substance: FUROSEMIDE
     Indication: HYPERTENSION
     Route: 064
  2. EPOGEN [Concomitant]
     Active Substance: ERYTHROPOIETIN
     Indication: PRODUCT USED FOR UNKNOWN INDICATION
     Route: 064
  3. NORVASC [Concomitant]
     Active Substance: AMLODIPINE BESYLATE
     Indication: HYPERTENSION
     Route: 064
  4. MYCOPHENOLATE MOFETIL. [Suspect]
     Active Substance: MYCOPHENOLATE MOFETIL
     Indication: ERYTHEMA MULTIFORME
     Route: 064
     Dates: start: 20040301, end: 20040305
  5. PREDNISONE. [Concomitant]
     Active Substance: PREDNISONE
     Indication: PRODUCT USED FOR UNKNOWN INDICATION
     Route: 064
  6. METOPROLOL. [Concomitant]
     Active Substance: METOPROLOL
     Indication: HYPERTENSION
     Route: 064
  7. TACROLIMUS. [Concomitant]
     Active Substance: TACROLIMUS
     Indication: PRODUCT USED FOR UNKNOWN INDICATION
     Route: 064
  8. ACICLOVIR [Concomitant]
     Active Substance: ACYCLOVIR
     Indication: HERPES ZOSTER
     Route: 064

REACTIONS (17)
  - Congenital nail disorder [Unknown]
  - Cleft palate [Unknown]
  - Congenital diaphragmatic hernia [Unknown]
  - External auditory canal atresia [Unknown]
  - Cyanosis neonatal [Unknown]
  - Congenital abdominal hernia [Unknown]
  - Coarctation of the aorta [Unknown]
  - Dysmorphism [Unknown]
  - Microtia [Unknown]
  - Fryns syndrome [Unknown]
  - Tracheo-oesophageal fistula [Unknown]
  - Congenital musculoskeletal anomaly [Unknown]
  - Pulmonary hypoplasia [Fatal]
  - Iris coloboma [Unknown]
  - Heart disease congenital [Unknown]
  - Coloboma [Unknown]
  - Oesophageal atresia [Unknown]
